FAERS Safety Report 9185600 (Version 2)
Quarter: 2013Q2

REPORT INFORMATION
  Report Type: Spontaneous
  Country: US (occurrence: US)
  Receive Date: 20130325
  Receipt Date: 20130402
  Transmission Date: 20140414
  Serious: No
  Sender: FDA-Public Use
  Company Number: US-BIOGENIDEC-2013BI026754

PATIENT
  Age: 43 Year
  Sex: Male

DRUGS (1)
  1. AVONEX [Suspect]
     Indication: MULTIPLE SCLEROSIS
     Route: 030
     Dates: start: 20121211

REACTIONS (6)
  - Dysarthria [Not Recovered/Not Resolved]
  - Mobility decreased [Unknown]
  - Fall [Recovered/Resolved]
  - Amnesia [Not Recovered/Not Resolved]
  - Musculoskeletal disorder [Unknown]
  - Adverse drug reaction [Not Recovered/Not Resolved]
